FAERS Safety Report 7841609-2 (Version None)
Quarter: 2011Q4

REPORT INFORMATION
  Report Type: 
  Country: None (occurrence: None)
  Receive Date: 20111025
  Receipt Date: 20111018
  Transmission Date: 20120403
  Serious: Yes (Disabling)
  Sender: FDA-Public Use
  Company Number: AU-B.I. PHARMACEUTICALS,INC./RIDGEFIELD-2011-AU-01929AU

PATIENT
  Sex: Female
  Weight: 87 kg

DRUGS (5)
  1. LIPITOR [Concomitant]
     Dates: start: 20060101
  2. PULMICORT [Concomitant]
     Dosage: 2 PUFFS TWICE DAILY
     Dates: start: 20000101
  3. NEXIUM [Concomitant]
     Dates: start: 20060101
  4. PERINDOPRIL ERBUMINE [Concomitant]
     Dates: start: 20110910
  5. SPIRIVA [Suspect]
     Indication: ASTHMA
     Dosage: 18 MCG
     Dates: start: 20091101, end: 20111007

REACTIONS (2)
  - IMPAIRED WORK ABILITY [None]
  - DYSPNOEA [None]
